FAERS Safety Report 15607610 (Version 1)
Quarter: 2018Q4

REPORT INFORMATION
  Report Type: Spontaneous
  Country: US (occurrence: US)
  Receive Date: 20181112
  Receipt Date: 20181112
  Transmission Date: 20190205
  Serious: No
  Sender: FDA-Public Use
  Company Number: US-EMD SERONO-9050271

PATIENT
  Sex: Female

DRUGS (3)
  1. REBIF [Suspect]
     Active Substance: INTERFERON BETA-1A
     Indication: MULTIPLE SCLEROSIS
     Dosage: 0.2 ML
     Route: 058
     Dates: start: 20180329, end: 201804
  2. REBIF [Suspect]
     Active Substance: INTERFERON BETA-1A
     Route: 058
     Dates: start: 201805
  3. REBIF [Suspect]
     Active Substance: INTERFERON BETA-1A
     Dosage: ON WEEKS 3-4. (0.5 ML)
     Route: 058
     Dates: start: 201804, end: 201804

REACTIONS (6)
  - Abdominal discomfort [Not Recovered/Not Resolved]
  - Mastication disorder [Not Recovered/Not Resolved]
  - Tooth disorder [Not Recovered/Not Resolved]
  - Complication associated with device [Not Recovered/Not Resolved]
  - Insomnia [Not Recovered/Not Resolved]
  - Device issue [Not Recovered/Not Resolved]

NARRATIVE: CASE EVENT DATE: 2018
